FAERS Safety Report 10369371 (Version 1)
Quarter: 2014Q3

REPORT INFORMATION
  Report Type: Spontaneous
  Country: US (occurrence: US)
  Receive Date: 20140807
  Receipt Date: 20140807
  Transmission Date: 20150326
  Serious: No
  Sender: FDA-Public Use
  Company Number: US-ABBVIE-13P-163-1133943-00

PATIENT
  Sex: Male

DRUGS (7)
  1. DEPAKOTE ER [Suspect]
     Active Substance: DIVALPROEX SODIUM
     Indication: CONVULSION
     Route: 048
     Dates: start: 201308, end: 201308
  2. INDERAL [Suspect]
     Active Substance: PROPRANOLOL HYDROCHLORIDE
     Indication: PRODUCT USED FOR UNKNOWN INDICATION
     Dates: start: 201308, end: 201308
  3. COLACE [Suspect]
     Active Substance: DOCUSATE SODIUM
     Indication: PRODUCT USED FOR UNKNOWN INDICATION
     Route: 048
     Dates: start: 201308, end: 201308
  4. MIRALAX [Suspect]
     Active Substance: POLYETHYLENE GLYCOL 3350
     Indication: PRODUCT USED FOR UNKNOWN INDICATION
     Dates: start: 201308, end: 201308
  5. DEPAKOTE ER [Suspect]
     Active Substance: DIVALPROEX SODIUM
     Indication: CONVULSION
     Dosage: 1250 MG TOTAL 2 500MG AND 250MG DOSE
     Dates: start: 201308, end: 201308
  6. ZYPREXA [Suspect]
     Active Substance: OLANZAPINE
     Indication: PRODUCT USED FOR UNKNOWN INDICATION
     Route: 048
     Dates: start: 201308, end: 201308
  7. TRAZODONE [Suspect]
     Active Substance: TRAZODONE HYDROCHLORIDE
     Indication: PRODUCT USED FOR UNKNOWN INDICATION
     Dates: start: 201308, end: 201308

REACTIONS (3)
  - Wrong patient received medication [Not Recovered/Not Resolved]
  - Anticonvulsant drug level increased [Not Recovered/Not Resolved]
  - Sedation [Recovering/Resolving]

NARRATIVE: CASE EVENT DATE: 201308
